FAERS Safety Report 20835225 (Version 1)
Quarter: 2022Q2

REPORT INFORMATION
  Report Type: Spontaneous
  Country: CA (occurrence: CA)
  Receive Date: 20220516
  Receipt Date: 20220516
  Transmission Date: 20220721
  Serious: Yes (Other)
  Sender: FDA-Public Use
  Company Number: CA-PFIZER INC-202200661284

PATIENT
  Age: 65 Year
  Sex: Female

DRUGS (2)
  1. METHOTREXATE SODIUM [Suspect]
     Active Substance: METHOTREXATE SODIUM
     Dosage: UNK
  2. ABRILADA [Concomitant]
     Active Substance: ADALIMUMAB-AFZB
     Indication: Crohn^s disease
     Dosage: 160 MG WEEK 0, 80 MG WEEK 2, 40 MG Q. 2 WEEKS - NOT YET STARTED
     Route: 058

REACTIONS (3)
  - Fistula [Unknown]
  - Therapeutic product effect delayed [Unknown]
  - Thiopurine methyltransferase decreased [Unknown]
